FAERS Safety Report 18682455 (Version 3)
Quarter: 2021Q1

REPORT INFORMATION
  Report Type: Other
  Country: US (occurrence: US)
  Receive Date: 20201230
  Receipt Date: 20210211
  Transmission Date: 20210419
  Serious: No
  Sender: FDA-Public Use
  Company Number: US-ROCHE-2741396

PATIENT
  Age: 18 Year
  Sex: Female

DRUGS (1)
  1. OCREVUS [Suspect]
     Active Substance: OCRELIZUMAB
     Indication: RELAPSING MULTIPLE SCLEROSIS
     Dosage: (PRESCRIBED: 300 MG IV ONCE, REPEAT THE DOSE 2 WEEKS LATER, 600 MG IV EVERY 6 MONTHS)?DATE OF TREATM
     Route: 042
     Dates: start: 20190708

REACTIONS (2)
  - COVID-19 [Unknown]
  - Memory impairment [Not Recovered/Not Resolved]

NARRATIVE: CASE EVENT DATE: 20201106
